FAERS Safety Report 7481824-3 (Version None)
Quarter: 2011Q2

REPORT INFORMATION
  Report Type: 
  Country: None (occurrence: None)
  Receive Date: 20110516
  Receipt Date: 20110513
  Transmission Date: 20111010
  Serious: Yes (Life-Threatening, Hospitalization, Other)
  Sender: FDA-Public Use
  Company Number: AU-JNJFOC-20110202068

PATIENT
  Sex: Female

DRUGS (2)
  1. INVEGA SUSTENNA [Suspect]
     Indication: SCHIZOPHRENIA
     Route: 030
     Dates: start: 20110124, end: 20110124
  2. INVEGA SUSTENNA [Suspect]
     Route: 030
     Dates: start: 20110201

REACTIONS (3)
  - CARDIAC FAILURE [None]
  - CHEST PAIN [None]
  - SUPRAVENTRICULAR TACHYCARDIA [None]
